FAERS Safety Report 8023336-4 (Version None)
Quarter: 2012Q1

REPORT INFORMATION
  Report Type: 
  Country: None (occurrence: None)
  Receive Date: 20120104
  Receipt Date: 20120103
  Transmission Date: 20120608
  Serious: Yes (Hospitalization, Other)
  Sender: FDA-Public Use
  Company Number: US-ROCHE-755638

PATIENT
  Sex: Male

DRUGS (1)
  1. ACCUTANE [Suspect]
     Indication: ACNE
     Route: 065
     Dates: start: 19950501, end: 19951101

REACTIONS (8)
  - PROCTITIS ULCERATIVE [None]
  - INTESTINAL PERFORATION [None]
  - POSTOPERATIVE ABSCESS [None]
  - INTESTINAL HAEMORRHAGE [None]
  - INFECTIOUS PERITONITIS [None]
  - GASTROINTESTINAL DISORDER [None]
  - INTESTINAL OBSTRUCTION [None]
  - INFLAMMATORY BOWEL DISEASE [None]
